FAERS Safety Report 15157402 (Version 1)
Quarter: 2018Q3

REPORT INFORMATION
  Report Type: Spontaneous
  Country: US (occurrence: US)
  Receive Date: 20180718
  Receipt Date: 20180718
  Transmission Date: 20181010
  Serious: Yes (Other)
  Sender: FDA-Public Use
  Company Number: US-AMGEN-USASP2018096316

PATIENT
  Age: 45 Year
  Sex: Female

DRUGS (3)
  1. METHOTREXATE. [Suspect]
     Active Substance: METHOTREXATE
     Indication: RHEUMATOID ARTHRITIS
     Dosage: UNK
     Route: 065
     Dates: start: 201201
  2. ENBREL [Suspect]
     Active Substance: ETANERCEPT
     Dosage: UNK UNK, QWK
     Route: 065
     Dates: start: 201708, end: 201806
  3. ENBREL [Suspect]
     Active Substance: ETANERCEPT
     Indication: RHEUMATOID ARTHRITIS
     Dosage: UNK UNK, QWK
     Route: 065
     Dates: start: 201209, end: 201301

REACTIONS (7)
  - Sinusitis [Unknown]
  - Skin papilloma [Unknown]
  - Pain [Unknown]
  - Dermatitis exfoliative generalised [Not Recovered/Not Resolved]
  - Bronchitis [Unknown]
  - Drug ineffective [Unknown]
  - Fracture delayed union [Not Recovered/Not Resolved]

NARRATIVE: CASE EVENT DATE: 20180712
